FAERS Safety Report 19391553 (Version 1)
Quarter: 2021Q2

REPORT INFORMATION
  Report Type: Spontaneous
  Country: GB (occurrence: GB)
  Receive Date: 20210609
  Receipt Date: 20210609
  Transmission Date: 20210717
  Serious: Yes (Hospitalization)
  Sender: FDA-Public Use
  Company Number: GB-TEVA-2021-GB-1919907

PATIENT
  Age: 10 Day
  Sex: Male

DRUGS (5)
  1. OCTREOTIDE. [Suspect]
     Active Substance: OCTREOTIDE
     Route: 042
  2. OCTREOTIDE. [Suspect]
     Active Substance: OCTREOTIDE
     Indication: CHYLOTHORAX
     Dosage: INITIAL DOSE NOT STATED
     Route: 042
  3. OCTREOTIDE. [Suspect]
     Active Substance: OCTREOTIDE
     Route: 042
  4. ALBUMIN [Concomitant]
     Active Substance: ALBUMIN HUMAN
     Indication: DEHYDRATION
     Route: 065
  5. NORMAL SALINE [Concomitant]
     Active Substance: SODIUM CHLORIDE
     Indication: DEHYDRATION
     Route: 065

REACTIONS (1)
  - Sepsis [Unknown]
